FAERS Safety Report 20144454 (Version 1)
Quarter: 2021Q4

REPORT INFORMATION
  Report Type: Other
  Country: ES (occurrence: None)
  Receive Date: 20211203
  Receipt Date: 20211203
  Transmission Date: 20220304
  Serious: Yes (Other)
  Sender: FDA-Public Use
  Company Number: ES-ROCHE-2963057

PATIENT

DRUGS (3)
  1. BEVACIZUMAB [Suspect]
     Active Substance: BEVACIZUMAB
     Indication: Non-small cell lung cancer
     Route: 042
  2. CISPLATIN [Suspect]
     Active Substance: CISPLATIN
     Indication: Non-small cell lung cancer
     Route: 042
  3. GEMCITABINE [Suspect]
     Active Substance: GEMCITABINE
     Indication: Non-small cell lung cancer
     Route: 042

REACTIONS (19)
  - Asthenia [Unknown]
  - Neutropenia [Unknown]
  - Nausea [Unknown]
  - Anaemia [Unknown]
  - Thrombocytopenia [Unknown]
  - Decreased appetite [Unknown]
  - Constipation [Unknown]
  - Diarrhoea [Unknown]
  - Dermatitis [Unknown]
  - Dysphagia [Unknown]
  - Oesophagitis [Unknown]
  - Febrile neutropenia [Unknown]
  - Hypocalcaemia [Unknown]
  - Hypertension [Unknown]
  - Embolism [Unknown]
  - Proteinuria [Unknown]
  - Epistaxis [Unknown]
  - Haemoptysis [Unknown]
  - Superficial vein thrombosis [Unknown]
